FAERS Safety Report 4457071-6 (Version None)
Quarter: 2004Q3

REPORT INFORMATION
  Report Type: 
  Country: None (occurrence: None)
  Receive Date: 20040923
  Receipt Date: 20040906
  Transmission Date: 20050211
  Serious: Yes (Other)
  Sender: FDA-Public Use
  Company Number: JP-ABBOTT-04P-087-0272628-00

PATIENT
  Sex: Male

DRUGS (6)
  1. CLARITHROMYCIN [Interacting]
     Indication: HELICOBACTER INFECTION
     Route: 048
     Dates: start: 20040825, end: 20040825
  2. CLARITHROMYCIN [Interacting]
     Indication: GASTRIC ULCER
  3. LANSOPRAZOLE [Suspect]
     Indication: HELICOBACTER INFECTION
     Route: 048
     Dates: start: 20040825, end: 20040825
  4. LANSOPRAZOLE [Suspect]
     Indication: GASTRIC ULCER
  5. AMOXICILLIN [Suspect]
     Indication: HELICOBACTER INFECTION
     Route: 048
     Dates: start: 20040825, end: 20040825
  6. AMOXICILLIN [Suspect]
     Indication: GASTRIC ULCER

REACTIONS (2)
  - FLUSHING [None]
  - GENERALISED OEDEMA [None]
